FAERS Safety Report 6763940-4 (Version None)
Quarter: 2010Q2

REPORT INFORMATION
  Report Type: 
  Country: None (occurrence: None)
  Receive Date: 20100610
  Receipt Date: 20100607
  Transmission Date: 20101027
  Serious: Yes (Hospitalization)
  Sender: FDA-Public Use
  Company Number: US-GILEAD-2010-0029381

PATIENT
  Age: 46 Year
  Sex: Female
  Weight: 83.082 kg

DRUGS (11)
  1. TRUVADA [Suspect]
     Indication: HIV INFECTION
     Route: 048
     Dates: start: 20100331
  2. DARUNAVIR [Suspect]
     Indication: HIV INFECTION
     Route: 048
     Dates: start: 20100331
  3. RITONAVIR [Suspect]
     Indication: HIV INFECTION
     Route: 048
     Dates: start: 20100331
  4. HYDROCHLOROTHIAZIDE [Concomitant]
  5. NIFEDIPINE [Concomitant]
  6. CLARITIN [Concomitant]
  7. PATANOL [Concomitant]
  8. MOTRIN [Concomitant]
  9. PROVENTIL MDI [Concomitant]
  10. ADVAIR DISKUS 100/50 [Concomitant]
  11. OMEPRAZOLE [Concomitant]

REACTIONS (1)
  - DYSPNOEA [None]
